FAERS Safety Report 14094407 (Version 2)
Quarter: 2019Q1

REPORT INFORMATION
  Report Type: Spontaneous
  Country: US (occurrence: US)
  Receive Date: 20171016
  Receipt Date: 20190207
  Transmission Date: 20190417
  Serious: Yes (Other)
  Sender: FDA-Public Use
  Company Number: US-AMGEN-USASP2017035137

PATIENT
  Age: 71 Year
  Sex: Female

DRUGS (1)
  1. PROLIA [Suspect]
     Active Substance: DENOSUMAB
     Indication: OSTEOPOROSIS POSTMENOPAUSAL
     Dosage: 60 MG, Q6MO
     Route: 065

REACTIONS (6)
  - Oral surgery [Unknown]
  - Tooth infection [Not Recovered/Not Resolved]
  - Toothache [Unknown]
  - Tooth fracture [Unknown]
  - Endodontic procedure [Unknown]
  - Gingival disorder [Unknown]

NARRATIVE: CASE EVENT DATE: 201805
